FAERS Safety Report 8219712-7 (Version None)
Quarter: 2012Q1

REPORT INFORMATION
  Report Type: 
  Country: None (occurrence: None)
  Receive Date: 20120319
  Receipt Date: 20120312
  Transmission Date: 20120608
  Serious: Yes (Death, Disabling)
  Sender: FDA-Public Use
  Company Number: FR-ROCHE-1040643

PATIENT
  Age: 78 Year
  Sex: Female
  Weight: 69 kg

DRUGS (3)
  1. MABTHERA [Suspect]
     Indication: B-CELL LYMPHOMA
     Route: 042
     Dates: start: 20041224, end: 20050628
  2. MABTHERA [Suspect]
     Route: 042
     Dates: start: 20081016
  3. ZEVALIN [Concomitant]
     Dates: start: 20081023

REACTIONS (1)
  - ACUTE MYELOID LEUKAEMIA [None]
